FAERS Safety Report 9634997 (Version 1)
Quarter: 2013Q4

REPORT INFORMATION
  Report Type: Spontaneous
  Country: US (occurrence: US)
  Receive Date: 20131021
  Receipt Date: 20131021
  Transmission Date: 20140711
  Serious: No
  Sender: FDA-Public Use
  Company Number: US-BAYER-2013-127603

PATIENT
  Sex: Female

DRUGS (1)
  1. ALEVE GELCAPS [Suspect]
     Indication: MYALGIA
     Dosage: 2 DF, PRN
     Route: 048

REACTIONS (1)
  - Urticaria [Recovered/Resolved]
